FAERS Safety Report 7898160-3 (Version None)
Quarter: 2011Q4

REPORT INFORMATION
  Report Type: 
  Country: None (occurrence: None)
  Receive Date: 20111107
  Receipt Date: 20111026
  Transmission Date: 20120403
  Serious: Yes (Other)
  Sender: FDA-Public Use
  Company Number: US-MERCK-1110USA04104

PATIENT
  Age: 75 Year
  Sex: Male

DRUGS (3)
  1. ADLONE [Concomitant]
     Route: 065
  2. ATENOLOL [Concomitant]
     Route: 065
  3. SINEMET [Suspect]
     Indication: PARKINSON'S DISEASE
     Dosage: 25-100 MG / 8 PER DAY
     Route: 048
     Dates: start: 20111023

REACTIONS (1)
  - CONVULSION [None]
